FAERS Safety Report 12629643 (Version 1)
Quarter: 2016Q3

REPORT INFORMATION
  Report Type: Spontaneous
  Country: US (occurrence: US)
  Receive Date: 20160808
  Receipt Date: 20160808
  Transmission Date: 20161109
  Serious: Yes (Other)
  Sender: FDA-Public Use
  Company Number: US-GLAXOSMITHKLINE-US2016GSK112743

PATIENT
  Sex: Male

DRUGS (1)
  1. REQUIP [Suspect]
     Active Substance: ROPINIROLE HYDROCHLORIDE
     Indication: RESTLESS LEGS SYNDROME
     Dosage: UNK
     Dates: start: 200902

REACTIONS (7)
  - Bladder cancer [Unknown]
  - Venous occlusion [Unknown]
  - Neoplasm malignant [Unknown]
  - Pain in extremity [Unknown]
  - Drug dose omission [Unknown]
  - Leukaemia [Unknown]
  - Vascular operation [Unknown]

NARRATIVE: CASE EVENT DATE: 2015
